FAERS Safety Report 9838949 (Version 1)
Quarter: 2014Q1

REPORT INFORMATION
  Report Type: Spontaneous
  Country: US (occurrence: US)
  Receive Date: 20140123
  Receipt Date: 20140123
  Transmission Date: 20141002
  Serious: Yes (Hospitalization, Other)
  Sender: FDA-Public Use
  Company Number: PHEH2014US001506

PATIENT
  Sex: Male

DRUGS (4)
  1. DIOVAN HCT [Suspect]
  2. DIOVAN [Suspect]
  3. PERCOCET [Concomitant]
     Indication: PAIN
     Dosage: 10 MG, UNK
  4. PROCHLORPERAZ [Concomitant]
     Dosage: UNK UKN, UNK

REACTIONS (3)
  - Colon cancer [Unknown]
  - Blood pressure increased [Unknown]
  - Drug ineffective [Unknown]
